FAERS Safety Report 14759841 (Version 1)
Quarter: 2018Q2

REPORT INFORMATION
  Report Type: Spontaneous
  Country: US (occurrence: US)
  Receive Date: 20180413
  Receipt Date: 20180413
  Transmission Date: 20180711
  Serious: No
  Sender: FDA-Public Use
  Company Number: US-MYLANLABS-2018M1019930

PATIENT
  Sex: Female

DRUGS (1)
  1. FLUVOXAMINE MALEATE TABLETS, USP [Suspect]
     Active Substance: FLUVOXAMINE MALEATE
     Indication: PRODUCT USED FOR UNKNOWN INDICATION
     Dosage: 100 MG, UNK
     Route: 048
     Dates: start: 20171212

REACTIONS (3)
  - Depression [Unknown]
  - Drug ineffective [Unknown]
  - Agitation [Unknown]
